FAERS Safety Report 15594285 (Version 2)
Quarter: 2018Q4

REPORT INFORMATION
  Report Type: Spontaneous
  Country: US (occurrence: US)
  Receive Date: 20181107
  Receipt Date: 20181112
  Transmission Date: 20190205
  Serious: Yes (Hospitalization, Other)
  Sender: FDA-Public Use
  Company Number: US-PFIZER INC-2018449429

PATIENT
  Age: 35 Year
  Sex: Male
  Weight: 77.1 kg

DRUGS (2)
  1. METHADONE [Suspect]
     Active Substance: METHADONE HYDROCHLORIDE
     Indication: DRUG DEPENDENCE
     Dosage: 95 MG, UNK
  2. CABERGOLINE. [Suspect]
     Active Substance: CABERGOLINE
     Indication: NEOPLASM
     Dosage: UNK, 2X/WEEK (AS PRESCRIBED BY DOCTOR)
     Dates: start: 2013

REACTIONS (4)
  - Insomnia [Not Recovered/Not Resolved]
  - Suicidal ideation [Recovered/Resolved]
  - Night sweats [Not Recovered/Not Resolved]
  - Anxiety [Not Recovered/Not Resolved]

NARRATIVE: CASE EVENT DATE: 201810
